FAERS Safety Report 8159037-1 (Version None)
Quarter: 2012Q1

REPORT INFORMATION
  Report Type: 
  Country: None (occurrence: None)
  Receive Date: 20120223
  Receipt Date: 20101214
  Transmission Date: 20120608
  Serious: Yes (Death, Other)
  Sender: FDA-Public Use
  Company Number: FR-CELGENEUS-056-21880-10121280

PATIENT
  Sex: Female
  Weight: 60 kg

DRUGS (6)
  1. DEXAMETHASONE [Suspect]
     Indication: MULTIPLE MYELOMA
     Dosage: 2.8571 MILLIGRAM
     Route: 048
     Dates: start: 20100217, end: 20100408
  2. PREDNISONE TAB [Suspect]
     Indication: MULTIPLE MYELOMA
     Dosage: 840MG A MONTH
     Route: 048
     Dates: start: 20100408, end: 20100421
  3. REVLIMID [Suspect]
     Dosage: 10 MILLIGRAM
     Route: 048
     Dates: start: 20101027, end: 20101109
  4. DEXAMETHASONE [Suspect]
     Dosage: 80MG A MONTH
     Route: 048
     Dates: start: 20101027, end: 20101109
  5. REVLIMID [Suspect]
     Indication: MULTIPLE MYELOMA
     Dosage: 10 MILLIGRAM
     Route: 048
     Dates: start: 20100217
  6. ASPIRIN [Concomitant]
     Indication: THROMBOSIS PROPHYLAXIS
     Route: 065

REACTIONS (3)
  - HYPERCALCAEMIA [None]
  - PULMONARY OEDEMA [None]
  - RENAL FAILURE [None]
